FAERS Safety Report 7296532-1 (Version None)
Quarter: 2011Q1

REPORT INFORMATION
  Report Type: 
  Country: None (occurrence: None)
  Receive Date: 20110216
  Receipt Date: 20110204
  Transmission Date: 20110831
  Serious: Yes (Hospitalization, Other)
  Sender: FDA-Public Use
  Company Number: PHHY2010FR14888

PATIENT
  Sex: Male

DRUGS (3)
  1. NEORAL [Suspect]
     Indication: HEART TRANSPLANT
     Route: 048
     Dates: start: 20070628
  2. CERTICAN [Suspect]
     Indication: HEART TRANSPLANT
     Dosage: 0.75 MG, UNK
     Route: 048
     Dates: start: 20080228
  3. CELLCEPT [Concomitant]
     Dates: start: 20070625, end: 20080228

REACTIONS (7)
  - PLEURAL EFFUSION [None]
  - METASTASES TO CENTRAL NERVOUS SYSTEM [None]
  - FACE OEDEMA [None]
  - METASTASES TO PLEURA [None]
  - DYSPNOEA [None]
  - RENAL FAILURE [None]
  - LUNG ADENOCARCINOMA [None]
